FAERS Safety Report 12914803 (Version 1)
Quarter: 2016Q4

REPORT INFORMATION
  Report Type: Spontaneous
  Country: US (occurrence: US)
  Receive Date: 20161106
  Receipt Date: 20161106
  Transmission Date: 20170207
  Serious: No
  Sender: FDA-Public Use
  Company Number: US-RELYPSA-RLY2016002052

PATIENT
  Age: 51 Year
  Sex: Male

DRUGS (16)
  1. KIONEX [Concomitant]
     Active Substance: SODIUM POLYSTYRENE SULFONATE
  2. TRIAMTERENE AND HYDROCHLOROTHIAZIDE [Concomitant]
     Active Substance: HYDROCHLOROTHIAZIDE\TRIAMTERENE
  3. METFORMIN [Concomitant]
     Active Substance: METFORMIN HYDROCHLORIDE
  4. AQUAPHOR [Concomitant]
     Active Substance: PETROLATUM
  5. LYRICA [Concomitant]
     Active Substance: PREGABALIN
  6. GLIPIZIDE. [Concomitant]
     Active Substance: GLIPIZIDE
  7. NASACORT [Concomitant]
     Active Substance: TRIAMCINOLONE ACETONIDE
  8. ATORVASTATIN [Concomitant]
     Active Substance: ATORVASTATIN
  9. TRADJENTA [Concomitant]
     Active Substance: LINAGLIPTIN
  10. DILTIAZEM. [Concomitant]
     Active Substance: DILTIAZEM
  11. VELTASSA [Suspect]
     Active Substance: PATIROMER
     Indication: HYPERKALAEMIA
     Dosage: 8.4 G, QD
     Route: 048
     Dates: start: 20160617
  12. SODIUM BICARBONATE. [Concomitant]
     Active Substance: SODIUM BICARBONATE
  13. TAMSULOSIN [Concomitant]
     Active Substance: TAMSULOSIN
  14. CARTIA XT [Concomitant]
     Active Substance: DILTIAZEM HYDROCHLORIDE
  15. TEMAZEPAM. [Concomitant]
     Active Substance: TEMAZEPAM
  16. HYDROCODONE BITARTRATE AND ACETAMINOPHEN [Concomitant]
     Active Substance: ACETAMINOPHEN\HYDROCODONE BITARTRATE

REACTIONS (1)
  - Constipation [Not Recovered/Not Resolved]

NARRATIVE: CASE EVENT DATE: 201608
